FAERS Safety Report 9482564 (Version 1)
Quarter: 2013Q3

REPORT INFORMATION
  Report Type: Spontaneous
  Country: IT (occurrence: None)
  Receive Date: 20130822
  Receipt Date: 20130822
  Transmission Date: 20140515
  Serious: Yes (Other)
  Sender: FDA-Public Use
  Company Number: 2013P1018610

PATIENT
  Age: 70 Year
  Sex: Male

DRUGS (3)
  1. ISOSORBIDE DINITRATE [Suspect]
     Route: 060
  2. TECHNETIUM-99M ARCITUMOMAB [Concomitant]
  3. SESTAMIBI [Concomitant]

REACTIONS (1)
  - Silent myocardial infarction [None]
